FAERS Safety Report 7081536-4 (Version None)
Quarter: 2010Q4

REPORT INFORMATION
  Report Type: 
  Country: None (occurrence: None)
  Receive Date: 20101103
  Receipt Date: 20101029
  Transmission Date: 20110411
  Serious: Yes (Hospitalization, Disabling, Other)
  Sender: FDA-Public Use
  Company Number: US-MERCK-0812USA05214

PATIENT
  Age: 61 Year
  Sex: Female

DRUGS (3)
  1. FOSAMAX [Suspect]
     Indication: OSTEOPOROSIS
     Route: 048
     Dates: start: 20030401, end: 20070801
  2. FOSAMAX [Suspect]
     Route: 048
     Dates: start: 19950101
  3. PREMARIN [Concomitant]
     Indication: HORMONE REPLACEMENT THERAPY
     Route: 065
     Dates: start: 19650101

REACTIONS (84)
  - ABDOMINAL PAIN UPPER [None]
  - ABDOMINAL WALL ABSCESS [None]
  - ADJUSTMENT DISORDER WITH DEPRESSED MOOD [None]
  - ANGIOPATHY [None]
  - ANIMAL BITE [None]
  - ANTIBIOTIC RESISTANT STAPHYLOCOCCUS TEST [None]
  - APHTHOUS STOMATITIS [None]
  - ARTHROPATHY [None]
  - ASTHMA [None]
  - ATRIAL FIBRILLATION [None]
  - ATROPHIC VULVOVAGINITIS [None]
  - BLISTER [None]
  - BLOOD COUNT ABNORMAL [None]
  - BLOOD PRESSURE INCREASED [None]
  - BREATH SOUNDS ABNORMAL [None]
  - BRONCHITIS [None]
  - CELLULITIS [None]
  - CHEST PAIN [None]
  - CONTUSION [None]
  - CYSTOCELE [None]
  - DEEP VEIN THROMBOSIS [None]
  - DENTAL CARIES [None]
  - DENTAL PLAQUE [None]
  - DEPRESSION [None]
  - DERMATITIS [None]
  - DIABETES MELLITUS [None]
  - DIABETIC NEUROPATHY [None]
  - DRUG HYPERSENSITIVITY [None]
  - DYSPHONIA [None]
  - ENDOMETRIOSIS [None]
  - ENTHESOPATHY [None]
  - EXOSTOSIS [None]
  - FATIGUE [None]
  - GASTRITIS [None]
  - GASTROINTESTINAL HAEMORRHAGE [None]
  - GASTROOESOPHAGEAL REFLUX DISEASE [None]
  - HAEMORRHAGE [None]
  - HAEMORRHAGIC ANAEMIA [None]
  - HAEMORRHOIDS [None]
  - HEADACHE [None]
  - HELMINTHIC INFECTION [None]
  - HYPERCHOLESTEROLAEMIA [None]
  - HYPERTENSION [None]
  - HYPERTRIGLYCERIDAEMIA [None]
  - HYPOAESTHESIA ORAL [None]
  - IMPAIRED HEALING [None]
  - IMPETIGO [None]
  - JAW DISORDER [None]
  - LICHENIFICATION [None]
  - LIGAMENT SPRAIN [None]
  - MENORRHAGIA [None]
  - MUSCLE SPASMS [None]
  - NEUROPATHY PERIPHERAL [None]
  - ORAL DISCOMFORT [None]
  - ORAL HERPES [None]
  - ORAL TORUS [None]
  - OSTEOARTHRITIS [None]
  - OSTEONECROSIS OF JAW [None]
  - OSTEOPENIA [None]
  - OVARIAN FAILURE [None]
  - PERIODONTITIS [None]
  - PHARYNGEAL ERYTHEMA [None]
  - PHLEBITIS SUPERFICIAL [None]
  - RECTOCELE [None]
  - RESTLESS LEGS SYNDROME [None]
  - ROAD TRAFFIC ACCIDENT [None]
  - SCIATICA [None]
  - SEASONAL ALLERGY [None]
  - SENSITIVITY OF TEETH [None]
  - SPINAL OSTEOARTHRITIS [None]
  - STAPHYLOCOCCAL INFECTION [None]
  - STOMATITIS [None]
  - STRESS [None]
  - TONGUE DISORDER [None]
  - TOOTH DISORDER [None]
  - TRANSIENT ISCHAEMIC ATTACK [None]
  - TRAUMATIC OCCLUSION [None]
  - UPPER RESPIRATORY TRACT INFECTION [None]
  - URINARY TRACT INFECTION [None]
  - URTICARIA [None]
  - UTERINE LEIOMYOMA [None]
  - VARICOSE VEIN [None]
  - VERTIGO [None]
  - VULVOVAGINAL MYCOTIC INFECTION [None]
